FAERS Safety Report 6558461-8 (Version None)
Quarter: 2010Q1

REPORT INFORMATION
  Report Type: 
  Country: None (occurrence: None)
  Receive Date: 20100129
  Receipt Date: 20100121
  Transmission Date: 20100710
  Serious: Yes (Other)
  Sender: FDA-Public Use
  Company Number: BR-JNJFOC-20100110186

PATIENT
  Sex: Female

DRUGS (1)
  1. REMINYL ER [Suspect]
     Indication: DRUG USE FOR UNKNOWN INDICATION
     Route: 065

REACTIONS (3)
  - DRUG PRESCRIBING ERROR [None]
  - MEDICATION ERROR [None]
  - NO ADVERSE EVENT [None]
